FAERS Safety Report 6099242-1 (Version None)
Quarter: 2009Q1

REPORT INFORMATION
  Report Type: 
  Country: None (occurrence: None)
  Receive Date: 20090303
  Receipt Date: 20090224
  Transmission Date: 20090719
  Serious: Yes (Other)
  Sender: FDA-Public Use
  Company Number: US-JNJFOC-20090101271

PATIENT
  Sex: Female
  Weight: 136.99 kg

DRUGS (4)
  1. DURAGESIC-100 [Suspect]
     Indication: FIBROMYALGIA
     Route: 062
  2. AMBIEN [Concomitant]
     Indication: SLEEP DISORDER
     Dosage: 1 AS NEEDED
     Route: 048
  3. VICODIN [Concomitant]
     Indication: PAIN
     Route: 048
  4. CYMBALTA [Concomitant]
     Indication: NERVOUSNESS
     Route: 048

REACTIONS (3)
  - RASH [None]
  - WEIGHT DECREASED [None]
  - WRONG TECHNIQUE IN DRUG USAGE PROCESS [None]
